FAERS Safety Report 4908910-3 (Version None)
Quarter: 2006Q1

REPORT INFORMATION
  Report Type: 
  Country: None (occurrence: None)
  Receive Date: 20060210
  Receipt Date: 20060131
  Transmission Date: 20060701
  Serious: Yes (Hospitalization)
  Sender: FDA-Public Use
  Company Number: US-SANOFI-SYNTHELABO-A03200600556

PATIENT
  Age: 75 Year
  Sex: Male
  Weight: 69 kg

DRUGS (14)
  1. UROXATRAL [Suspect]
     Indication: BENIGN PROSTATIC HYPERPLASIA
     Route: 048
     Dates: start: 20051101, end: 20051101
  2. ECOTRIN [Concomitant]
     Route: 048
  3. PROSCAR [Concomitant]
     Route: 048
  4. AMIODARONE [Concomitant]
     Route: 048
  5. LANTUS [Concomitant]
     Route: 058
  6. LOPRESSOR [Concomitant]
     Route: 048
  7. NOVOLOG [Concomitant]
     Dosage: SLIDING SCALE
     Route: 058
  8. NYSTATIN [Concomitant]
     Dosage: UNK
     Route: 048
  9. SYNTHROID [Concomitant]
     Route: 048
  10. ALPHAGAN [Concomitant]
     Route: 047
  11. DIGOXIN [Concomitant]
     Route: 048
  12. COUMADIN [Concomitant]
     Route: 048
  13. DOCUSATE CALCIUM [Concomitant]
     Route: 048
  14. LOVENOX [Concomitant]
     Route: 058

REACTIONS (10)
  - BLOOD CREATININE INCREASED [None]
  - BLOOD MAGNESIUM INCREASED [None]
  - BLOOD POTASSIUM DECREASED [None]
  - BRAIN NATRIURETIC PEPTIDE INCREASED [None]
  - DYSPNOEA [None]
  - ELECTROCARDIOGRAM QT PROLONGED [None]
  - HYPERHIDROSIS [None]
  - PAIN IN EXTREMITY [None]
  - VENTRICULAR DYSFUNCTION [None]
  - VENTRICULAR TACHYCARDIA [None]
